FAERS Safety Report 9303808 (Version 1)
Quarter: 2013Q2

REPORT INFORMATION
  Report Type: Spontaneous
  Country: FR (occurrence: FR)
  Receive Date: 20130522
  Receipt Date: 20130522
  Transmission Date: 20140414
  Serious: Yes (Hospitalization)
  Sender: FDA-Public Use
  Company Number: FR-GLAXOSMITHKLINE-B0891310A

PATIENT
  Age: 52 Year
  Sex: Female
  Weight: 84 kg

DRUGS (6)
  1. LAMICTAL [Suspect]
     Indication: AFFECTIVE DISORDER
     Dosage: 50MG PER DAY
     Route: 048
     Dates: start: 20130314, end: 20130411
  2. NOCTAMIDE [Concomitant]
     Dosage: 1UNIT PER DAY
     Route: 065
  3. XANAX [Concomitant]
     Route: 065
  4. ATENOLOL [Concomitant]
     Dosage: 50MG PER DAY
     Route: 065
  5. MODURETIC [Concomitant]
     Dosage: 1UNIT PER DAY
     Route: 065
  6. DOLIPRANE [Concomitant]
     Indication: PAIN
     Route: 065

REACTIONS (35)
  - Drug reaction with eosinophilia and systemic symptoms [Recovered/Resolved]
  - Pyrexia [Recovered/Resolved]
  - Rash maculo-papular [Recovered/Resolved]
  - Asthenia [Recovered/Resolved]
  - Eosinophilia [Recovered/Resolved]
  - Hepatocellular injury [Recovered/Resolved]
  - Blood creatinine increased [Recovered/Resolved]
  - Chills [Recovered/Resolved]
  - Myalgia [Recovered/Resolved]
  - Swelling face [Recovered/Resolved]
  - Weight decreased [Unknown]
  - Rash [Recovered/Resolved]
  - Abdominal pain [Recovered/Resolved]
  - Inflammation [Recovered/Resolved]
  - Lymphopenia [Unknown]
  - Thrombocytopenia [Unknown]
  - Hypokalaemia [Unknown]
  - Hyponatraemia [Unknown]
  - Renal failure acute [Unknown]
  - Hypotension [Unknown]
  - Breath sounds abnormal [Unknown]
  - Rhonchi [Unknown]
  - Cough [Recovered/Resolved]
  - Dyspnoea exertional [Recovered/Resolved]
  - Splenomegaly [Unknown]
  - Lymphadenopathy [Recovered/Resolved]
  - Skin burning sensation [Recovered/Resolved]
  - Oral mucosa erosion [Recovered/Resolved]
  - Skin exfoliation [Recovered/Resolved]
  - Arthralgia [Unknown]
  - Pulmonary embolism [Unknown]
  - Dermatitis exfoliative [Recovered/Resolved]
  - Purpura [Recovered/Resolved]
  - Toxic skin eruption [Recovered/Resolved]
  - Incorrect dose administered [Unknown]
